FAERS Safety Report 7292355-8 (Version None)
Quarter: 2011Q1

REPORT INFORMATION
  Report Type: 
  Country: None (occurrence: None)
  Receive Date: 20110215
  Receipt Date: 20110202
  Transmission Date: 20110831
  Serious: Yes (Death)
  Sender: FDA-Public Use
  Company Number: US-BAYER-2011-013747

PATIENT
  Sex: Male

DRUGS (1)
  1. INTERFERON BETA-1B [Suspect]
     Dosage: 0.3 MG, UNK

REACTIONS (1)
  - DEATH [None]
